FAERS Safety Report 6333161-8 (Version None)
Quarter: 2009Q3

REPORT INFORMATION
  Report Type: 
  Country: None (occurrence: None)
  Receive Date: 20090828
  Receipt Date: 20090825
  Transmission Date: 20100115
  Serious: No
  Sender: FDA-Public Use
  Company Number: US-B.I. PHARMACEUTICALS,INC./RIDGEFIELD-2009-BP-10067BP

PATIENT
  Sex: Male

DRUGS (16)
  1. SPIRIVA [Suspect]
     Indication: ASTHMA
     Dosage: 18 MCG
     Route: 055
     Dates: start: 20070101
  2. ZETIA [Concomitant]
     Indication: CARDIAC DISORDER
  3. DILTIAZEM [Concomitant]
     Indication: CARDIAC DISORDER
  4. COUMADIN [Concomitant]
     Indication: ANTICOAGULANT THERAPY
  5. LIPITOR [Concomitant]
     Indication: CARDIAC DISORDER
  6. LOVAZA [Concomitant]
     Indication: CARDIAC DISORDER
  7. NIACIN [Concomitant]
     Indication: CARDIAC DISORDER
  8. XOPENEX HFA [Concomitant]
     Indication: ASTHMA
  9. ALLEGRA [Concomitant]
     Indication: MULTIPLE ALLERGIES
  10. FUROSEMIDE [Concomitant]
     Indication: CARDIAC DISORDER
  11. XALATAN [Concomitant]
     Indication: GLAUCOMA
  12. LORAZEPAM [Concomitant]
     Indication: INSOMNIA
     Dates: start: 19970101
  13. GLUCOSAMINE [Concomitant]
     Indication: ARTHRITIS
     Dates: start: 19940101
  14. CHONDROITIN [Concomitant]
     Indication: ARTHRITIS
     Dates: start: 19940101
  15. MSM [Concomitant]
     Indication: ARTHRITIS
     Dates: start: 19940101
  16. ASTELIN [Concomitant]
     Indication: HYPERSENSITIVITY
     Route: 045

REACTIONS (1)
  - DYSPNOEA [None]
